FAERS Safety Report 19322475 (Version 1)
Quarter: 2021Q2

REPORT INFORMATION
  Report Type: Spontaneous
  Country: US (occurrence: US)
  Receive Date: 20210528
  Receipt Date: 20210528
  Transmission Date: 20210717
  Serious: No
  Sender: FDA-Public Use
  Company Number: US-GW PHARMA-202105USGW02536

PATIENT

DRUGS (8)
  1. EPIDIOLEX [Suspect]
     Active Substance: CANNABIDIOL
     Indication: SEIZURE
     Dosage: 140 MILLIGRAM, BID (GIVE 1.4 ML BY MOUTH TWICE DAILY WITH FOOD FOR 1 WEEK)
     Route: 048
     Dates: start: 202103, end: 2021
  2. CLONIDINE HCL [Concomitant]
     Active Substance: CLONIDINE HYDROCHLORIDE
     Indication: PRODUCT USED FOR UNKNOWN INDICATION
     Dosage: UNK
     Route: 065
  3. EPIDIOLEX [Suspect]
     Active Substance: CANNABIDIOL
     Dosage: 280 MILLIGRAM, BID (2.8 ML BY MOUTH TWICE DAILY WITH FOOD)
     Route: 048
     Dates: start: 2021, end: 2021
  4. CETIRIZINE HCL [Concomitant]
     Active Substance: CETIRIZINE HYDROCHLORIDE
     Indication: PRODUCT USED FOR UNKNOWN INDICATION
     Dosage: UNK
     Route: 065
  5. EPIDIOLEX [Suspect]
     Active Substance: CANNABIDIOL
     Dosage: 140 MILLIGRAM, BID
     Route: 048
     Dates: start: 2021, end: 2021
  6. INTUNIV [Concomitant]
     Active Substance: GUANFACINE HYDROCHLORIDE
     Indication: PRODUCT USED FOR UNKNOWN INDICATION
     Dosage: UNK
     Route: 065
  7. DIVALPROEX SODIUM. [Concomitant]
     Active Substance: DIVALPROEX SODIUM
     Indication: PRODUCT USED FOR UNKNOWN INDICATION
     Dosage: UNK (ER)
     Route: 065
  8. EPIDIOLEX [Suspect]
     Active Substance: CANNABIDIOL
     Dosage: 200 MILLIGRAM, BID
     Route: 048
     Dates: start: 2021

REACTIONS (3)
  - Weight decreased [Unknown]
  - Seizure [Unknown]
  - Product use in unapproved indication [Unknown]

NARRATIVE: CASE EVENT DATE: 2021
